FAERS Safety Report 8214003-2 (Version None)
Quarter: 2012Q1

REPORT INFORMATION
  Report Type: 
  Country: None (occurrence: None)
  Receive Date: 20120316
  Receipt Date: 20120313
  Transmission Date: 20120608
  Serious: No
  Sender: FDA-Public Use
  Company Number: US-PFIZER INC-2012066764

PATIENT
  Sex: Female
  Weight: 65.76 kg

DRUGS (2)
  1. ALAVERT [Suspect]
     Indication: SINUS CONGESTION
     Dosage: UNK
     Route: 048
     Dates: start: 20120311, end: 20120311
  2. ALAVERT [Suspect]
     Indication: HYPERSENSITIVITY

REACTIONS (4)
  - DRUG INEFFECTIVE [None]
  - SOMNOLENCE [None]
  - EYE PRURITUS [None]
  - NASAL CONGESTION [None]
